FAERS Safety Report 10768692 (Version 1)
Quarter: 2015Q1

REPORT INFORMATION
  Report Type: Spontaneous
  Country: JP (occurrence: None)
  Receive Date: 20150204
  Receipt Date: 20150204
  Transmission Date: 20150721
  Serious: Yes (Other)
  Sender: FDA-Public Use
  Company Number: 2015-10567

PATIENT
  Age: 84 Year
  Sex: Female

DRUGS (3)
  1. EYLEA [Suspect]
     Active Substance: AFLIBERCEPT
     Indication: NEOVASCULAR AGE-RELATED MACULAR DEGENERATION
     Dosage: 2 MG, ONCE - OS, INTRAOCULAR
     Route: 031
     Dates: start: 20130910, end: 20130910
  2. CRAVIT (LEVOFLOXACIN) EYE DROPS, 0.5% [Concomitant]
     Active Substance: LEVOFLOXACIN
  3. BAYASPIRIN (ACETYLSALICYLIC ACID) (ACETYLSALICYLIC ACID) [Suspect]
     Active Substance: ASPIRIN
     Indication: PRODUCT USED FOR UNKNOWN INDICATION
     Route: 048

REACTIONS (2)
  - Retinal haemorrhage [None]
  - Vitreous haemorrhage [None]

NARRATIVE: CASE EVENT DATE: 20140207
